FAERS Safety Report 4312467-8 (Version None)
Quarter: 2004Q1

REPORT INFORMATION
  Report Type: 
  Country: None (occurrence: None)
  Receive Date: 20040305
  Receipt Date: 20040224
  Transmission Date: 20041129
  Serious: Yes (Other)
  Sender: FDA-Public Use
  Company Number: PHRM2004DZ01010

PATIENT
  Age: 54 Year
  Sex: Female

DRUGS (1)
  1. FORADIL [Suspect]
     Indication: ASTHMA
     Dosage: 12 UG, BID

REACTIONS (2)
  - EXANTHEM [None]
  - LOSS OF CONSCIOUSNESS [None]
